FAERS Safety Report 10946633 (Version 1)
Quarter: 2015Q1

REPORT INFORMATION
  Report Type: Spontaneous
  Country: US (occurrence: None)
  Receive Date: 20150212
  Receipt Date: 20150212
  Transmission Date: 20150721
  Serious: Yes (Other)
  Sender: FDA-Public Use
  Company Number: TPA2011A07603

PATIENT
  Age: 66 Year
  Sex: Female

DRUGS (2)
  1. ULORIC [Suspect]
     Active Substance: FEBUXOSTAT
     Indication: GOUT
     Route: 048
  2. ALLOPURINOL. [Concomitant]
     Active Substance: ALLOPURINOL

REACTIONS (2)
  - Renal failure [None]
  - Creatinine renal clearance decreased [None]
